FAERS Safety Report 14499024 (Version 1)
Quarter: 2018Q1

REPORT INFORMATION
  Report Type: Spontaneous
  Country: FR (occurrence: FR)
  Receive Date: 20180207
  Receipt Date: 20180207
  Transmission Date: 20180509
  Serious: Yes (Hospitalization)
  Sender: FDA-Public Use
  Company Number: FR-PFIZER INC-2018049145

PATIENT
  Age: 34 Year
  Sex: Female
  Weight: 46 kg

DRUGS (1)
  1. XALKORI [Suspect]
     Active Substance: CRIZOTINIB
     Indication: LUNG ADENOCARCINOMA
     Dosage: 500 MG, UNK
     Route: 048
     Dates: start: 20160826, end: 20171213

REACTIONS (3)
  - Liver abscess [Recovering/Resolving]
  - Renal abscess [Recovering/Resolving]
  - Splenic abscess [Recovering/Resolving]

NARRATIVE: CASE EVENT DATE: 20170928
